FAERS Safety Report 9783011 (Version 1)
Quarter: 2013Q4

REPORT INFORMATION
  Report Type: Report from Study
  Country: US (occurrence: US)
  Receive Date: 20131226
  Receipt Date: 20131226
  Transmission Date: 20140711
  Serious: Yes (Hospitalization, Other)
  Sender: FDA-Public Use
  Company Number: US-ASTELLAS-2013US013365

PATIENT
  Age: 78 Year
  Sex: Male

DRUGS (3)
  1. ERLOTINIB TABLET [Suspect]
     Indication: NON-SMALL CELL LUNG CANCER STAGE IV
     Dosage: 150 MG, UID/QD
     Route: 048
     Dates: start: 20130718
  2. TOPROL [Concomitant]
     Indication: CARDIAC FIBRILLATION
     Dosage: 50 MG, UID/QD
     Route: 048
  3. XARELTO [Concomitant]
     Indication: PRODUCT USED FOR UNKNOWN INDICATION
     Dosage: UNK
     Route: 065

REACTIONS (5)
  - Pulmonary thrombosis [Unknown]
  - Pulmonary oedema [Unknown]
  - Lung neoplasm [Unknown]
  - Haemoptysis [Not Recovered/Not Resolved]
  - Pneumonia [Unknown]
